FAERS Safety Report 7283385-0 (Version None)
Quarter: 2011Q1

REPORT INFORMATION
  Report Type: 
  Country: None (occurrence: None)
  Receive Date: 20110209
  Receipt Date: 20100729
  Transmission Date: 20110831
  Serious: No
  Sender: FDA-Public Use
  Company Number: A0872965A

PATIENT
  Sex: Male

DRUGS (2)
  1. OTHER MEDICATIONS [Concomitant]
  2. PAXIL [Suspect]
     Route: 048

REACTIONS (2)
  - SEXUAL DYSFUNCTION [None]
  - ERECTILE DYSFUNCTION [None]
